FAERS Safety Report 4768781-5 (Version None)
Quarter: 2005Q3

REPORT INFORMATION
  Report Type: 
  Country: None (occurrence: None)
  Receive Date: 20050914
  Receipt Date: 20050906
  Transmission Date: 20060218
  Serious: Yes (Other)
  Sender: FDA-Public Use
  Company Number: 200516477US

PATIENT
  Sex: Female

DRUGS (5)
  1. LANTUS [Suspect]
     Indication: DIABETES MELLITUS NON-INSULIN-DEPENDENT
     Dosage: DOSE UNIT: UNITS
     Route: 051
     Dates: start: 20050101
  2. HUMALOG [Concomitant]
     Dosage: DOSE: UNKNOWN
  3. FUROSEMIDE [Concomitant]
  4. SERUMLIPIDREDUCING AGENTS [Concomitant]
     Dosage: DOSE: UNKNOWN
  5. GABAPENTIN [Concomitant]
     Route: 048

REACTIONS (3)
  - ABDOMINAL PAIN [None]
  - CHEST PAIN [None]
  - PAIN [None]
